FAERS Safety Report 20584650 (Version 1)
Quarter: 2022Q1

REPORT INFORMATION
  Report Type: Spontaneous
  Country: FR (occurrence: FR)
  Receive Date: 20220311
  Receipt Date: 20220311
  Transmission Date: 20220423
  Serious: Yes (Other)
  Sender: FDA-Public Use
  Company Number: None

PATIENT
  Age: 39 Year
  Sex: Male

DRUGS (3)
  1. TRAMADOL HYDROCHLORIDE [Suspect]
     Active Substance: TRAMADOL HYDROCHLORIDE
     Dosage: 1 GRAM DAILY;
     Route: 065
  2. HEROIN [Suspect]
     Active Substance: DIAMORPHINE
     Dosage: UNSPECIFIED
     Route: 042
  3. COCAINE [Suspect]
     Active Substance: COCAINE
     Dosage: 10 TO 15 G/D
     Route: 065

REACTIONS (3)
  - General physical health deterioration [Not Recovered/Not Resolved]
  - Drug abuse [Not Recovered/Not Resolved]
  - Soft tissue infection [Recovering/Resolving]

NARRATIVE: CASE EVENT DATE: 20210426
